FAERS Safety Report 19246136 (Version 2)
Quarter: 2025Q4

REPORT INFORMATION
  Report Type: Report from Study
  Country: EU (occurrence: EU)
  Receive Date: 20210512
  Receipt Date: 20251218
  Transmission Date: 20260117
  Serious: Yes (Hospitalization)
  Sender: AMGEN
  Company Number: EU-AMGEN-GRCSP2021069672

PATIENT
  Age: 71 Year
  Sex: Female
  Weight: 98 kg

DRUGS (38)
  1. TRASTUZUMAB [Suspect]
     Active Substance: TRASTUZUMAB
     Indication: HER2 positive breast cancer
     Dosage: 8 MILLIGRAM/KILOGRAM, Q3WK
     Route: 040
     Dates: start: 20161018
  2. TRASTUZUMAB [Suspect]
     Active Substance: TRASTUZUMAB
     Dosage: 780 MILLIGRAM, Q3WK MOST RECENT DOSE PRIOR TO THE EVENT: 17/NOV/2016 AND 10/MAY/2019
     Route: 040
     Dates: start: 20161025, end: 20161025
  3. TRASTUZUMAB [Suspect]
     Active Substance: TRASTUZUMAB
     Dosage: 570 MILLIGRAM, Q3WK
     Route: 048
     Dates: start: 20161117, end: 20170705
  4. PERTUZUMAB [Suspect]
     Active Substance: PERTUZUMAB
     Indication: HER2 positive breast cancer
     Dosage: 840 MILLIGRAM/KILOGRAM, Q3WK
     Route: 042
     Dates: start: 20161018
  5. PERTUZUMAB [Suspect]
     Active Substance: PERTUZUMAB
     Dosage: 840 MILLIGRAM/KILOGRAM, Q3WK
     Route: 040
     Dates: start: 20161117, end: 20161117
  6. DOCETAXEL [Suspect]
     Active Substance: DOCETAXEL
     Indication: HER2 positive breast cancer
     Dosage: 75 MILLIGRAM/KILOGRAM, Q3WK, MOST RECENT DOSE PRIOR TO THE EVENT: 17/NOV/2016
     Route: 042
     Dates: start: 20161018
  7. DOCETAXEL [Suspect]
     Active Substance: DOCETAXEL
     Dosage: 160 MILLIGRAM, Q3WK  MOST RECENT DOSE PRIOR TO THE EVENT: 17/NOV/2016
     Route: 042
     Dates: start: 20161025, end: 20161025
  8. CAPECITABINE [Suspect]
     Active Substance: CAPECITABINE
     Indication: HER2 positive breast cancer
     Dosage: 2000 MILLIGRAM, BID MOST RECENT DOSE PRIOR TO THE EVENT ON 22/OCT/2018
     Route: 040
     Dates: start: 20180618, end: 20180709
  9. CAPECITABINE [Suspect]
     Active Substance: CAPECITABINE
     Dosage: 1500 MILLIGRAM, BID
     Route: 040
     Dates: start: 20180723, end: 20181012
  10. CAPECITABINE [Suspect]
     Active Substance: CAPECITABINE
     Dosage: 1000 MILLIGRAM, BID  MOST RECENT DOSE PRIOR TO THE EVENT ON 22/OCT/2018
     Route: 040
     Dates: start: 20181022, end: 20190102
  11. CAPECITABINE [Suspect]
     Active Substance: CAPECITABINE
     Dosage: MOST RECENT DOSE PRIOR TO THE EVENT ON 22/OCT/2018
     Route: 048
     Dates: start: 20181022
  12. ADO-TRASTUZUMAB EMTANSINE [Suspect]
     Active Substance: ADO-TRASTUZUMAB EMTANSINE
     Indication: HER2 positive breast cancer
     Dosage: 270 MILLIGRAM, Q3WK
     Route: 048
     Dates: start: 20170726, end: 20180504
  13. ADO-TRASTUZUMAB EMTANSINE [Suspect]
     Active Substance: ADO-TRASTUZUMAB EMTANSINE
     Dosage: 270 MILLIGRAM, Q3WK
     Route: 040
     Dates: start: 20170726, end: 20180504
  14. LAPATINIB [Suspect]
     Active Substance: LAPATINIB
     Indication: HER2 positive breast cancer
     Dosage: 1250 MILLIGRAM, QD MOST RECENT DOSE PRIOR TO THE EVENT: 14/NOV/2018
     Route: 048
     Dates: start: 20180611
  15. LAPATINIB [Suspect]
     Active Substance: LAPATINIB
     Dosage: 1250 MILLIGRAM, QD (MOST RECENT DOSE PRIOR TO THE EVENT: 14/NOV/2018)
     Route: 048
     Dates: start: 20180618, end: 20180709
  16. LAPATINIB [Suspect]
     Active Substance: LAPATINIB
     Dosage: 1250 MILLIGRAM, QD
     Route: 048
     Dates: start: 20180723, end: 20181113
  17. LAPATINIB [Suspect]
     Active Substance: LAPATINIB
     Dosage: 750 MILLIGRAM, QD
     Route: 048
     Dates: start: 20181114, end: 20190503
  18. LAPATINIB [Suspect]
     Active Substance: LAPATINIB
     Dosage: 1000 MILLIGRAM, QD
     Route: 048
     Dates: start: 20180723, end: 20181113
  19. GEMCITABINE [Suspect]
     Active Substance: GEMCITABINE
     Indication: HER2 positive breast cancer
     Dosage: 2000 MILLIGRAM, MOST RECENT DOSE PRIOR TO THE EVENT: 10/MAY/2019
     Route: 048
     Dates: start: 20190510, end: 20190703
  20. GEMCITABINE [Suspect]
     Active Substance: GEMCITABINE
     Dosage: 1500 MILLIGRAM
     Route: 048
     Dates: start: 20190724, end: 20190821
  21. GEMCITABINE [Suspect]
     Active Substance: GEMCITABINE
     Dosage: 750 MILLIGRAM  D1,D8
     Route: 040
     Dates: start: 20190828, end: 20190828
  22. ACETAMINOPHEN\CODEINE PHOSPHATE [Concomitant]
     Active Substance: ACETAMINOPHEN\CODEINE PHOSPHATE
     Dosage: UNK
  23. BILARGEN [Concomitant]
     Indication: Rash
     Dosage: UNK
     Dates: start: 20180601, end: 20180625
  24. GRANULOKINE [Concomitant]
     Active Substance: FILGRASTIM
     Dosage: UNK
     Dates: start: 20161102, end: 20161104
  25. LEVOTHYROXINE [Concomitant]
     Active Substance: LEVOTHYROXINE
     Dosage: UNK
     Dates: start: 20090615
  26. ZOMETA [Concomitant]
     Active Substance: ZOLEDRONIC ACID
     Dosage: UNK
     Dates: start: 20161018, end: 20190605
  27. LAMISIL [Concomitant]
     Active Substance: TERBINAFINE HYDROCHLORIDE
     Indication: Onychomycosis
     Dosage: UNK
     Dates: start: 20170404, end: 20170517
  28. CALCIUM CARBONATE\CHOLECALCIFEROL [Concomitant]
     Active Substance: CALCIUM CARBONATE\CHOLECALCIFEROL
     Dosage: UNK
     Dates: start: 20171218, end: 20190605
  29. CIPROFLOXACIN [Concomitant]
     Active Substance: CIPROFLOXACIN
     Indication: Pyrexia
     Dosage: UNK
     Dates: start: 20190503, end: 20190510
  30. CIPROFLOXACIN [Concomitant]
     Active Substance: CIPROFLOXACIN
     Dosage: UNK
     Dates: start: 20190705, end: 20190709
  31. VANCOMYCIN HYDROCHLORIDE [Concomitant]
     Active Substance: VANCOMYCIN HYDROCHLORIDE
     Dosage: UNK
     Dates: start: 20190706, end: 20190709
  32. PRIMPERAN [Concomitant]
     Active Substance: METOCLOPRAMIDE HYDROCHLORIDE
     Indication: Abdominal pain
     Dosage: UNK
     Dates: start: 20161102, end: 20161104
  33. PRIMPERAN [Concomitant]
     Active Substance: METOCLOPRAMIDE HYDROCHLORIDE
     Dosage: UNK
     Dates: start: 20161106, end: 20161110
  34. STABILANOL [Concomitant]
     Indication: Onychomycosis
     Dosage: UNK
     Dates: start: 20171218, end: 20180106
  35. STABILANOL [Concomitant]
     Dosage: UNK
     Dates: start: 20180205, end: 20180224
  36. LOSEC [Concomitant]
     Active Substance: OMEPRAZOLE
     Dosage: UNK
     Dates: start: 20190703, end: 20190709
  37. AMOXICILLIN\CLAVULANATE POTASSIUM [Concomitant]
     Active Substance: AMOXICILLIN\CLAVULANATE POTASSIUM
     Indication: Device related infection
     Dosage: UNK
     Dates: start: 20170517, end: 20170521
  38. FENTANYL [Concomitant]
     Active Substance: FENTANYL
     Dosage: UNK
     Dates: start: 20161015

REACTIONS (3)
  - Device related infection [Recovered/Resolved]
  - Peripheral sensory neuropathy [Recovered/Resolved]
  - Platelet count decreased [Recovered/Resolved]

NARRATIVE: CASE EVENT DATE: 20170517
